FAERS Safety Report 4851959-X (Version None)
Quarter: 2005Q4

REPORT INFORMATION
  Report Type: 
  Country: None (occurrence: None)
  Receive Date: 20051123
  Receipt Date: 20050920
  Transmission Date: 20060501
  Serious: No
  Sender: FDA-Public Use
  Company Number: 217928

PATIENT
  Age: 56 Year
  Sex: Female
  Weight: 72.6 kg

DRUGS (1)
  1. RAPTIVA [Suspect]
     Indication: PSORIASIS
     Dosage: 0.9 ML, 1/WEEK, SUBCUTANEOUS
     Route: 058
     Dates: start: 20050906

REACTIONS (4)
  - CHILLS [None]
  - HEADACHE [None]
  - NAUSEA [None]
  - PYREXIA [None]
